FAERS Safety Report 11789188 (Version 3)
Quarter: 2016Q1

REPORT INFORMATION
  Report Type: Spontaneous
  Country: US (occurrence: US)
  Receive Date: 20151201
  Receipt Date: 20160104
  Transmission Date: 20160525
  Serious: Yes (Hospitalization)
  Sender: FDA-Public Use
  Company Number: US-ASTELLAS-2015US044575

PATIENT
  Age: 74 Year
  Sex: Male

DRUGS (3)
  1. AVASTIN [Concomitant]
     Active Substance: BEVACIZUMAB
     Indication: LUNG NEOPLASM MALIGNANT
     Route: 042
     Dates: start: 20150303
  2. TARCEVA [Suspect]
     Active Substance: ERLOTINIB HYDROCHLORIDE
     Indication: NASAL SINUS CANCER
     Route: 048
     Dates: start: 20151002, end: 20151118
  3. TARCEVA [Suspect]
     Active Substance: ERLOTINIB HYDROCHLORIDE
     Indication: LUNG NEOPLASM MALIGNANT
     Route: 048
     Dates: start: 20151009

REACTIONS (7)
  - Ageusia [Unknown]
  - Decreased appetite [Unknown]
  - Nephrolithiasis [Recovered/Resolved]
  - Drug dose omission [Unknown]
  - Vomiting [Unknown]
  - Dysphagia [Unknown]
  - Kidney rupture [Recovered/Resolved]

NARRATIVE: CASE EVENT DATE: 20151119
